FAERS Safety Report 19295723 (Version 1)
Quarter: 2021Q2

REPORT INFORMATION
  Report Type: Spontaneous
  Country: US (occurrence: US)
  Receive Date: 20210524
  Receipt Date: 20210524
  Transmission Date: 20210717
  Serious: Yes (Other)
  Sender: FDA-Public Use
  Company Number: US-PFIZER INC-2021529139

PATIENT
  Age: 79 Year

DRUGS (1)
  1. XELJANZ XR [Suspect]
     Active Substance: TOFACITINIB CITRATE

REACTIONS (3)
  - Blindness [Not Recovered/Not Resolved]
  - COVID-19 [Recovered/Resolved]
  - Hypoacusis [Not Recovered/Not Resolved]
